FAERS Safety Report 23466387 (Version 3)
Quarter: 2024Q1

REPORT INFORMATION
  Report Type: Report from Study
  Country: US (occurrence: US)
  Receive Date: 20240201
  Receipt Date: 20240226
  Transmission Date: 20240410
  Serious: Yes (Hospitalization)
  Sender: FDA-Public Use
  Company Number: US-INSMED, INC.-2023-01167-US

PATIENT
  Sex: Female

DRUGS (3)
  1. ARIKAYCE [Suspect]
     Active Substance: AMIKACIN
     Indication: Mycobacterial infection
     Dosage: 590 MILLIGRAM, QD
     Route: 055
     Dates: start: 202208
  2. ARIKAYCE [Suspect]
     Active Substance: AMIKACIN
     Dosage: 590 MILLIGRAM, NOT DOING TREATMENT EVERY DAY/ONLY 2-3 TIMES A WEEK.
     Route: 055
  3. ARIKAYCE [Suspect]
     Active Substance: AMIKACIN
     Dosage: 590 MILLIGRAM, 5 TIMES PER WEEK
     Route: 055
     Dates: start: 2023, end: 2023

REACTIONS (3)
  - Hospitalisation [Unknown]
  - Illness [Not Recovered/Not Resolved]
  - Off label use [Unknown]
